FAERS Safety Report 12997354 (Version 1)
Quarter: 2016Q4

REPORT INFORMATION
  Report Type: Spontaneous
  Country: US (occurrence: US)
  Receive Date: 20161205
  Receipt Date: 20161205
  Transmission Date: 20170207
  Serious: No
  Sender: FDA-Public Use
  Company Number: US-ELI_LILLY_AND_COMPANY-US201611009234

PATIENT
  Sex: Female

DRUGS (2)
  1. CYMBALTA [Suspect]
     Active Substance: DULOXETINE HYDROCHLORIDE
     Indication: HEADACHE
     Dosage: 30 MG, QD
     Route: 065
     Dates: start: 201404
  2. CYMBALTA [Suspect]
     Active Substance: DULOXETINE HYDROCHLORIDE
     Dosage: 60 MG, QD
     Route: 065
     Dates: start: 201405, end: 20160520

REACTIONS (6)
  - Chest pain [Unknown]
  - Off label use [Unknown]
  - Oropharyngeal pain [Unknown]
  - Vomiting [Unknown]
  - Dysphagia [Unknown]
  - Hiccups [Unknown]

NARRATIVE: CASE EVENT DATE: 201404
